FAERS Safety Report 14583204 (Version 2)
Quarter: 2018Q1

REPORT INFORMATION
  Report Type: Report from Study
  Country: MX (occurrence: MX)
  Receive Date: 20180228
  Receipt Date: 20180308
  Transmission Date: 20180509
  Serious: Yes (Other)
  Sender: FDA-Public Use
  Company Number: MX-UCBSA-2018007793

PATIENT
  Sex: Female
  Weight: 2 kg

DRUGS (6)
  1. CERTOLIZUMAB PEGOL [Suspect]
     Active Substance: CERTOLIZUMAB PEGOL
     Indication: RHEUMATOID ARTHRITIS
     Dosage: UNK UNK, EV 15 DAYS
     Route: 064
     Dates: start: 2017, end: 2017
  2. METICORTEN [Concomitant]
     Active Substance: PREDNISONE
     Indication: SJOGREN^S SYNDROME
  3. ENOXAPARINA [Concomitant]
     Active Substance: ENOXAPARIN
     Indication: RHEUMATOID ARTHRITIS
  4. PROGESTERONA [Concomitant]
     Indication: PRODUCT USED FOR UNKNOWN INDICATION
  5. METICORTEN [Concomitant]
     Active Substance: PREDNISONE
     Indication: RHEUMATOID ARTHRITIS
  6. ENOXAPARINA [Concomitant]
     Active Substance: ENOXAPARIN
     Indication: SJOGREN^S SYNDROME

REACTIONS (2)
  - Foetal exposure during pregnancy [Unknown]
  - Premature baby [Unknown]

NARRATIVE: CASE EVENT DATE: 2017
